FAERS Safety Report 11934377 (Version 1)
Quarter: 2016Q1

REPORT INFORMATION
  Report Type: Spontaneous
  Country: US (occurrence: None)
  Receive Date: 20160120
  Receipt Date: 20160120
  Transmission Date: 20160526
  Serious: No
  Sender: FDA-Public Use
  Company Number: None

PATIENT

DRUGS (2)
  1. FASLODEX [Concomitant]
     Active Substance: FULVESTRANT
  2. IBRANCE [Suspect]
     Active Substance: PALBOCICLIB
     Indication: BRAIN NEOPLASM MALIGNANT
     Dosage: 1 CAP X 21 DAYS THEN OFF FOR 7 DAYS
     Route: 048
     Dates: start: 201511

REACTIONS (4)
  - Mucous stools [None]
  - Neuropathy peripheral [None]
  - Flatulence [None]
  - Dysgeusia [None]

NARRATIVE: CASE EVENT DATE: 20160118
